FAERS Safety Report 8192153-7 (Version None)
Quarter: 2012Q1

REPORT INFORMATION
  Report Type: 
  Country: None (occurrence: None)
  Receive Date: 20120307
  Receipt Date: 20120227
  Transmission Date: 20120608
  Serious: Yes (Hospitalization, Other)
  Sender: FDA-Public Use
  Company Number: US-RB-037785-12

PATIENT
  Sex: Female

DRUGS (1)
  1. SUBOXONE [Suspect]
     Indication: DRUG DEPENDENCE
     Route: 060
     Dates: start: 20100101

REACTIONS (11)
  - TONGUE ULCERATION [None]
  - BALANCE DISORDER [None]
  - DIZZINESS [None]
  - CSF TEST ABNORMAL [None]
  - HYPOAESTHESIA [None]
  - MOUTH ULCERATION [None]
  - DEAFNESS UNILATERAL [None]
  - MEMORY IMPAIRMENT [None]
  - ULCER [None]
  - HERPES ZOSTER OPHTHALMIC [None]
  - BRUXISM [None]
